FAERS Safety Report 5091677-9 (Version None)
Quarter: 2006Q3

REPORT INFORMATION
  Report Type: 
  Country: None (occurrence: None)
  Receive Date: 20060829
  Receipt Date: 20060823
  Transmission Date: 20061208
  Serious: Yes (Other)
  Sender: FDA-Public Use
  Company Number: FR-AVENTIS-200612932FR

PATIENT
  Age: 37 Year
  Sex: Female

DRUGS (1)
  1. KETEK [Suspect]
     Route: 048
     Dates: start: 20060613, end: 20060622

REACTIONS (2)
  - AGEUSIA [None]
  - ANOSMIA [None]
